FAERS Safety Report 18108594 (Version 1)
Quarter: 2020Q3

REPORT INFORMATION
  Report Type: Spontaneous
  Country: US (occurrence: US)
  Receive Date: 20200803
  Receipt Date: 20200803
  Transmission Date: 20201103
  Serious: Yes (Other)
  Sender: FDA-Public Use
  Company Number: US-BEH-2019106547

PATIENT
  Sex: Female
  Weight: 73.47 kg

DRUGS (2)
  1. HAEGARDA [Suspect]
     Active Substance: HUMAN C1-ESTERASE INHIBITOR
     Indication: PROPHYLAXIS
  2. HAEGARDA [Suspect]
     Active Substance: HUMAN C1-ESTERASE INHIBITOR
     Indication: HEREDITARY ANGIOEDEMA WITH C1 ESTERASE INHIBITOR DEFICIENCY
     Dosage: 5000 INTERNATIONAL UNIT, BIW, EVERY 3?4 DAYS
     Route: 058
     Dates: start: 202006

REACTIONS (3)
  - Hereditary angioedema [Unknown]
  - No adverse event [Unknown]
  - Exposure during pregnancy [Unknown]
